FAERS Safety Report 4416136-5 (Version None)
Quarter: 2004Q2

REPORT INFORMATION
  Report Type: 
  Country: None (occurrence: None)
  Receive Date: 20040623
  Receipt Date: 20040224
  Transmission Date: 20050107
  Serious: No
  Sender: FDA-Public Use
  Company Number: WAES 0402USA01779

PATIENT
  Age: 41 Year
  Sex: Female

DRUGS (2)
  1. INVANZ [Suspect]
     Indication: ESCHERICHIA INFECTION
     Dosage: IV
     Route: 042
  2. ANALGESIC OR ANESTHETIC (UNSPEC) [Concomitant]

REACTIONS (1)
  - BURNING SENSATION [None]
